FAERS Safety Report 14341151 (Version 1)
Quarter: 2018Q1

REPORT INFORMATION
  Report Type: Spontaneous
  Country: RU (occurrence: RU)
  Receive Date: 20180102
  Receipt Date: 20180102
  Transmission Date: 20180509
  Serious: Yes (Other)
  Sender: FDA-Public Use
  Company Number: RU-ROCHE-2047580

PATIENT
  Sex: Female

DRUGS (4)
  1. CYMEVENE [Suspect]
     Active Substance: GANCICLOVIR
     Indication: CYTOMEGALOVIRUS INFECTION
     Route: 042
     Dates: start: 20171130, end: 20171202
  2. CYMEVENE [Suspect]
     Active Substance: GANCICLOVIR
     Indication: SEPSIS
  3. MEROPENEM. [Concomitant]
     Active Substance: MEROPENEM
     Route: 042
     Dates: start: 20171116, end: 20171202
  4. MAGNESIUM SULFATE. [Concomitant]
     Active Substance: MAGNESIUM SULFATE
     Indication: BRAIN OEDEMA
     Route: 042
     Dates: start: 20171109, end: 20171123

REACTIONS (3)
  - Restlessness [Recovered/Resolved]
  - Rash [Recovered/Resolved]
  - Erythema [Recovered/Resolved]

NARRATIVE: CASE EVENT DATE: 20171202
